APPROVED DRUG PRODUCT: DOPAMINE HYDROCHLORIDE IN DEXTROSE 5% IN PLASTIC CONTAINER
Active Ingredient: DOPAMINE HYDROCHLORIDE
Strength: 80MG/100ML
Dosage Form/Route: INJECTABLE;INJECTION
Application: N019615 | Product #001 | TE Code: AP
Applicant: BAXTER HEALTHCARE CORP
Approved: Mar 27, 1987 | RLD: Yes | RS: Yes | Type: RX